FAERS Safety Report 12495757 (Version 1)
Quarter: 2016Q2

REPORT INFORMATION
  Report Type: Spontaneous
  Country: US (occurrence: None)
  Receive Date: 20160623
  Receipt Date: 20160623
  Transmission Date: 20160815
  Serious: No
  Sender: FDA-Public Use
  Company Number: None

PATIENT
  Age: 70 Year
  Sex: Male

DRUGS (6)
  1. XELJANZ [Suspect]
     Active Substance: TOFACITINIB CITRATE
     Indication: RHEUMATOID ARTHRITIS
     Route: 048
     Dates: start: 20150312
  2. LYRICA [Concomitant]
     Active Substance: PREGABALIN
  3. PREDNISONE. [Concomitant]
     Active Substance: PREDNISONE
  4. ATORVASTATIN [Concomitant]
     Active Substance: ATORVASTATIN
  5. ZOLPIDEM [Concomitant]
     Active Substance: ZOLPIDEM\ZOLPIDEM TARTRATE
  6. HYDROCO/APAP [Concomitant]
     Active Substance: ACETAMINOPHEN\HYDROCODONE

REACTIONS (3)
  - Pain [None]
  - Condition aggravated [None]
  - Herpes zoster [None]

NARRATIVE: CASE EVENT DATE: 201606
